FAERS Safety Report 14238000 (Version 2)
Quarter: 2018Q1

REPORT INFORMATION
  Report Type: Spontaneous
  Country: US (occurrence: US)
  Receive Date: 20171130
  Receipt Date: 20180126
  Transmission Date: 20180508
  Serious: No
  Sender: FDA-Public Use
  Company Number: US-PHARMING GROUP N.V.-PHAUS2017000234

PATIENT

DRUGS (3)
  1. RUCONEST [Suspect]
     Active Substance: HUMAN C1-ESTERASE INHIBITOR
     Indication: HEREDITARY ANGIOEDEMA
     Dosage: 2100 IU, THREE TIMES A WEEK AND AS NEEDED FOR BREAKTHROUGH SWELLS
     Route: 042
     Dates: start: 2015
  2. HAEGARDA [Concomitant]
     Active Substance: HUMAN C1-ESTERASE INHIBITOR
     Indication: PRODUCT USED FOR UNKNOWN INDICATION
     Dosage: UNK
     Route: 065
  3. RUCONEST [Suspect]
     Active Substance: HUMAN C1-ESTERASE INHIBITOR
     Indication: PROPHYLAXIS

REACTIONS (2)
  - Product use in unapproved indication [Unknown]
  - Influenza like illness [Unknown]
